FAERS Safety Report 9782999 (Version 1)
Quarter: 2013Q4

REPORT INFORMATION
  Report Type: Spontaneous
  Country: US (occurrence: None)
  Receive Date: 20131223
  Receipt Date: 20131223
  Transmission Date: 20140711
  Serious: Yes (Other)
  Sender: FDA-Public Use
  Company Number: EUS-2011-00763

PATIENT
  Age: 10 Year
  Sex: Female

DRUGS (7)
  1. ERWINASE [Suspect]
     Indication: ACUTE LYMPHOCYTIC LEUKAEMIA
     Dosage: 24250 IU, ON AUG 27, 20 + SEP 01, 03, 06, 08, INTRAMUSCULAR
     Route: 030
     Dates: start: 201008, end: 20100908
  2. SEPTRA [Concomitant]
  3. OXYCODONE [Concomitant]
  4. ZOFRAN [Concomitant]
  5. LACTULOSE [Concomitant]
  6. COLACE [Concomitant]
  7. MIRALAX [Concomitant]

REACTIONS (4)
  - Hypersensitivity [None]
  - Tachycardia [None]
  - Aspartate aminotransferase increased [None]
  - Alanine aminotransferase increased [None]
